FAERS Safety Report 8012769-8 (Version None)
Quarter: 2011Q4

REPORT INFORMATION
  Report Type: 
  Country: None (occurrence: None)
  Receive Date: 20111223
  Receipt Date: 20111223
  Transmission Date: 20120403
  Serious: No
  Sender: FDA-Public Use
  Company Number: None

PATIENT
  Age: 53 Year
  Sex: Male

DRUGS (2)
  1. VICTRELIS [Suspect]
     Indication: HEPATITIS C
     Dosage: 800 TID PO
     Route: 048
     Dates: start: 20111129, end: 20111219
  2. VICTRELIS [Suspect]
     Indication: HEPATITIS C
     Dosage: 800 TID PO
     Route: 048
     Dates: start: 20111129, end: 20111219

REACTIONS (3)
  - IMPAIRED WORK ABILITY [None]
  - FATIGUE [None]
  - DIZZINESS [None]
